FAERS Safety Report 10248183 (Version 1)
Quarter: 2014Q2

REPORT INFORMATION
  Report Type: Spontaneous
  Country: DE (occurrence: DE)
  Receive Date: 20140620
  Receipt Date: 20140620
  Transmission Date: 20141212
  Serious: Yes (Other)
  Sender: FDA-Public Use
  Company Number: PHHY2014DE073199

PATIENT
  Age: 50 Year
  Sex: Female

DRUGS (2)
  1. NABUMETONE [Suspect]
  2. IBUPROFEN [Suspect]

REACTIONS (3)
  - Adenoma benign [Recovered/Resolved]
  - Melanosis coli [Recovered/Resolved]
  - Gastric mucosal lesion [Recovered/Resolved]
